FAERS Safety Report 6186329-8 (Version None)
Quarter: 2009Q2

REPORT INFORMATION
  Report Type: 
  Country: None (occurrence: None)
  Receive Date: 20090511
  Receipt Date: 20090505
  Transmission Date: 20091009
  Serious: Yes (Other)
  Sender: FDA-Public Use
  Company Number: US-AVENTIS-200913909US

PATIENT
  Age: 70 Year
  Sex: Male

DRUGS (3)
  1. LANTUS [Suspect]
     Route: 058
     Dates: end: 20090301
  2. LANTUS [Suspect]
     Route: 058
     Dates: start: 20090301
  3. OPTICLIK (INSULIN INJECTION PEN) [Suspect]
     Dosage: DOSE: UNK

REACTIONS (2)
  - CATARACT [None]
  - NEPHROLITHIASIS [None]
